FAERS Safety Report 15136502 (Version 4)
Quarter: 2020Q2

REPORT INFORMATION
  Report Type: Spontaneous
  Country: US (occurrence: US)
  Receive Date: 20180712
  Receipt Date: 20200429
  Transmission Date: 20200713
  Serious: Yes (Other)
  Sender: FDA-Public Use
  Company Number: US-ELI_LILLY_AND_COMPANY-US201807002694

PATIENT
  Age: 43 Year
  Sex: Male

DRUGS (7)
  1. IBUPROFEN. [Concomitant]
     Active Substance: IBUPROFEN
     Indication: PAIN
     Dosage: UNK
     Dates: start: 2010, end: 2016
  2. CIALIS [Suspect]
     Active Substance: TADALAFIL
     Dosage: 23 MG, OTHER(2-3 IMES WEEKLY)
     Route: 048
     Dates: end: 20160812
  3. TYLENOL [Concomitant]
     Active Substance: ACETAMINOPHEN
     Indication: PAIN
     Dosage: UNK
     Dates: start: 1996
  4. XANAX [Concomitant]
     Active Substance: ALPRAZOLAM
     Indication: STRESS
     Dosage: UNK
     Dates: start: 2010, end: 2015
  5. XANAX [Concomitant]
     Active Substance: ALPRAZOLAM
     Indication: HEADACHE
  6. CIALIS [Suspect]
     Active Substance: TADALAFIL
     Indication: ERECTILE DYSFUNCTION
     Dosage: 10 MG, OTHER(ONCE EVERY2 MONTHS)
     Route: 048
     Dates: start: 20060403
  7. VIAGRA [Suspect]
     Active Substance: SILDENAFIL CITRATE
     Indication: ERECTILE DYSFUNCTION
     Dosage: 100 MG, OTHER(ONCE EVERY 2 MONTHS)
     Route: 048
     Dates: start: 20110325, end: 20160113

REACTIONS (1)
  - Malignant melanoma stage I [Unknown]

NARRATIVE: CASE EVENT DATE: 20090930
